FAERS Safety Report 6336676-1 (Version None)
Quarter: 2009Q3

REPORT INFORMATION
  Report Type: 
  Country: None (occurrence: None)
  Receive Date: 20090901
  Receipt Date: 20090825
  Transmission Date: 20100115
  Serious: Yes (Other)
  Sender: FDA-Public Use
  Company Number: CA-MERCK-0908CAN00083

PATIENT
  Sex: Male

DRUGS (5)
  1. JANUVIA [Suspect]
     Indication: TYPE 2 DIABETES MELLITUS
     Route: 048
     Dates: start: 20090701
  2. ROSUVASTATIN CALCIUM [Concomitant]
     Route: 065
  3. EZETIMIBE [Concomitant]
     Route: 065
  4. ASPIRIN [Concomitant]
     Route: 065
  5. VALSARTAN [Concomitant]
     Route: 065

REACTIONS (2)
  - AGGRESSION [None]
  - PHYSICAL ASSAULT [None]
